FAERS Safety Report 13300980 (Version 1)
Quarter: 2017Q1

REPORT INFORMATION
  Report Type: Not Available
  Country: DE (occurrence: DE)
  Receive Date: 20170307
  Receipt Date: 20170307
  Transmission Date: 20170428
  Serious: Yes (Other)
  Sender: FDA-Public Use
  Company Number: DE--2017-DE-000002

PATIENT
  Age: 21 Year
  Sex: Female

DRUGS (7)
  1. AMLODIPINE BESYLATE BRAND UNSPECIFIED (VIVIMED) [Suspect]
     Active Substance: AMLODIPINE BESYLATE
     Indication: SUICIDAL IDEATION
     Dosage: 60 TABLETS OF 5 MG (300 MG)
  2. CARVEDILOL. [Suspect]
     Active Substance: CARVEDILOL
     Indication: SUICIDAL IDEATION
     Dosage: 70 TABLETS OF 25 MG (1750 MG)
  3. AMITRIPTYLINE [Suspect]
     Active Substance: AMITRIPTYLINE
     Indication: SUICIDAL IDEATION
     Dosage: 60 TABLETS OF 100 MG (6000 MG)
  4. TORSEMIDE. [Suspect]
     Active Substance: TORSEMIDE
     Indication: SUICIDAL IDEATION
     Dosage: 50 TABLETS OF 10 MG (500 MG)
  5. KETOPROFEN. [Suspect]
     Active Substance: KETOPROFEN
     Indication: SUICIDAL IDEATION
     Dosage: 30 TABLETS OF 50 MG (1500 MG)
  6. NICOTINIC ACID [Suspect]
     Active Substance: NIACIN
     Indication: SUICIDAL IDEATION
     Dosage: 56 TABLETS OF 500 MG (28,000 MG)
  7. GABAPENTIN. [Suspect]
     Active Substance: GABAPENTIN
     Indication: SUICIDAL IDEATION
     Dosage: 40 TABLETS OF 400 MG (16,000 MG)

REACTIONS (4)
  - Bradycardia [Recovered/Resolved]
  - Loss of consciousness [Recovered/Resolved]
  - Suicidal ideation [Recovered/Resolved]
  - Toxicity to various agents [Recovered/Resolved]
